FAERS Safety Report 17809468 (Version 4)
Quarter: 2020Q2

REPORT INFORMATION
  Report Type: Spontaneous
  Country: PL (occurrence: PL)
  Receive Date: 20200521
  Receipt Date: 20200626
  Transmission Date: 20200714
  Serious: Yes (Life-Threatening, Other)
  Sender: FDA-Public Use
  Company Number: PL-AUROBINDO-AUR-APL-2020-025324

PATIENT
  Age: 24 Year
  Sex: Female

DRUGS (28)
  1. LAMOTRIGINE. [Suspect]
     Active Substance: LAMOTRIGINE
     Indication: SEIZURE
  2. LEVETIRACETAM. [Suspect]
     Active Substance: LEVETIRACETAM
     Indication: EPILEPSY
  3. GABAPENTIN. [Suspect]
     Active Substance: GABAPENTIN
     Indication: PARTIAL SEIZURES
     Dosage: UNK, (SPLITTING THE DRUGS INTO 3 DIVIDED DOSES)
     Route: 065
  4. TOPIRAMATE. [Suspect]
     Active Substance: TOPIRAMATE
     Indication: PARTIAL SEIZURES
  5. CARBAMAZEPINE. [Suspect]
     Active Substance: CARBAMAZEPINE
     Indication: SEIZURE
     Dosage: 600 MILLIGRAM, ONCE A DAY, (REDUCED TO 600 MG PER DAY AFTER PREGNANCY)
     Route: 065
  6. LEVETIRACETAM. [Suspect]
     Active Substance: LEVETIRACETAM
     Indication: SEIZURE
     Dosage: 300 MILLIGRAM, DAILY
     Route: 065
     Dates: start: 2010
  7. GABAPENTIN. [Suspect]
     Active Substance: GABAPENTIN
     Indication: SEIZURE
  8. OXCARBAZEPINE. [Suspect]
     Active Substance: OXCARBAZEPINE
     Indication: PARTIAL SEIZURES
  9. LAMOTRIGINE. [Suspect]
     Active Substance: LAMOTRIGINE
     Indication: PARTIAL SEIZURES
  10. LEVETIRACETAM. [Suspect]
     Active Substance: LEVETIRACETAM
     Indication: PARTIAL SEIZURES
     Dosage: 3000 MILLIGRAM, ONCE A DAY, (, SPLITTING THE DRUGS INTO 3 DIVIDED DOSES)
     Route: 048
  11. TOPIRAMATE. [Suspect]
     Active Substance: TOPIRAMATE
     Indication: EPILEPSY
     Dosage: UNK, (SPLITTING THE DRUGS INTO 3 DIVIDED DOSES)
     Route: 048
  12. LACOSAMIDE. [Suspect]
     Active Substance: LACOSAMIDE
     Indication: EPILEPSY
  13. VALPROIC ACID. [Suspect]
     Active Substance: VALPROIC ACID
     Indication: PARTIAL SEIZURES
  14. TOPIRAMATE. [Suspect]
     Active Substance: TOPIRAMATE
     Indication: SEIZURE
  15. CARBAMAZEPINE. [Suspect]
     Active Substance: CARBAMAZEPINE
     Dosage: 3000 MILLIGRAM, ONCE A DAY
     Route: 065
  16. LACOSAMIDE. [Suspect]
     Active Substance: LACOSAMIDE
     Indication: PARTIAL SEIZURES
     Dosage: 400 MILLIGRAM, ONCE A DAY, (SPLITTING THE DRUGS INTO 3 DIVIDED DOSES)
     Route: 048
  17. GABAPENTIN. [Suspect]
     Active Substance: GABAPENTIN
     Indication: EPILEPSY
  18. CARBAMAZEPINE. [Suspect]
     Active Substance: CARBAMAZEPINE
     Indication: PARTIAL SEIZURES
     Dosage: 1000 MILLIGRAM, ONCE A DAY, (SPLITTING THE DRUGS INTO 3 DIVIDED DOSES)
     Route: 065
  19. CARBAMAZEPINE. [Suspect]
     Active Substance: CARBAMAZEPINE
     Indication: EPILEPSY
     Dosage: 1400 MILLIGRAM, ONCE A DAY, (SPLITTING THE DRUGS INTO 3 DIVIDED DOSES)
     Route: 065
     Dates: start: 2010
  20. OXCARBAZEPINE. [Suspect]
     Active Substance: OXCARBAZEPINE
     Indication: EPILEPSY
     Dosage: UNK, (SPLITTING THE DRUGS INTO 3 DIVIDED DOSES)
     Route: 065
  21. PHENYTOIN. [Suspect]
     Active Substance: PHENYTOIN
     Indication: EPILEPSY
     Dosage: UNK, (SPLITTING THE DRUGS INTO 3 DIVIDED DOSES)
     Route: 065
  22. VALPROIC ACID. [Suspect]
     Active Substance: VALPROIC ACID
     Indication: EPILEPSY
     Dosage: UNK, (SPLITTING THE DRUGS INTO 3 DIVIDED DOSES)
     Route: 065
  23. TIAGABINE [Suspect]
     Active Substance: TIAGABINE
     Indication: PRODUCT USED FOR UNKNOWN INDICATION
     Dosage: UNK
     Route: 065
  24. LAMOTRIGINE. [Suspect]
     Active Substance: LAMOTRIGINE
     Indication: EPILEPSY
     Dosage: UNK, (SPLITTING THE DRUGS INTO 3 DIVIDED DOSES)
     Route: 065
  25. LACOSAMIDE. [Suspect]
     Active Substance: LACOSAMIDE
     Indication: SEIZURE
  26. PHENYTOIN. [Suspect]
     Active Substance: PHENYTOIN
     Indication: PARTIAL SEIZURES
  27. VIGABATRIN. [Suspect]
     Active Substance: VIGABATRIN
     Indication: EPILEPSY
     Dosage: UNK
     Route: 065
  28. VIGABATRIN. [Suspect]
     Active Substance: VIGABATRIN
     Indication: SEIZURE

REACTIONS (9)
  - Seizure [Recovered/Resolved]
  - Dizziness [Recovered/Resolved]
  - Condition aggravated [Unknown]
  - Normal newborn [Recovered/Resolved]
  - Maternal exposure during pregnancy [Recovered/Resolved]
  - Adverse reaction [Unknown]
  - Drug ineffective [Recovered/Resolved]
  - Neurotoxicity [Recovered/Resolved]
  - Diplopia [Recovered/Resolved]
